FAERS Safety Report 18286517 (Version 2)
Quarter: 2020Q4

REPORT INFORMATION
  Report Type: Report from Study
  Country: None (occurrence: US)
  Receive Date: 20200920
  Receipt Date: 20201204
  Transmission Date: 20210113
  Serious: Yes (Hospitalization, Other)
  Sender: FDA-Public Use
  Company Number: US-ABBVIE-20K-163-3570943-00

PATIENT
  Age: 47 Year
  Sex: Female

DRUGS (3)
  1. HUMIRA [Suspect]
     Active Substance: ADALIMUMAB
     Dosage: HUMIRA CF
     Route: 058
     Dates: start: 202008, end: 2020
  2. HUMIRA [Suspect]
     Active Substance: ADALIMUMAB
     Dosage: CITRATE FREE
     Route: 058
     Dates: start: 2020
  3. HUMIRA [Suspect]
     Active Substance: ADALIMUMAB
     Indication: HIDRADENITIS
     Dosage: CITRATE FREE
     Route: 058
     Dates: end: 2020

REACTIONS (9)
  - COVID-19 [Recovered/Resolved]
  - Hidradenitis [Not Recovered/Not Resolved]
  - COVID-19 [Recovered/Resolved]
  - Oesophageal disorder [Unknown]
  - Wrist surgery [Recovered/Resolved]
  - Fungal infection [Recovered/Resolved]
  - Respiratory disorder [Unknown]
  - Candida infection [Unknown]
  - Dysphagia [Unknown]

NARRATIVE: CASE EVENT DATE: 201912
